FAERS Safety Report 24905683 (Version 1)
Quarter: 2025Q1

REPORT INFORMATION
  Report Type: Spontaneous
  Country: FR (occurrence: FR)
  Receive Date: 20250130
  Receipt Date: 20250130
  Transmission Date: 20250408
  Serious: Yes (Other)
  Sender: JOHNSON AND JOHNSON
  Company Number: FR-002147023-NVSC2025FR008967

PATIENT
  Age: 73 Year
  Sex: Male
  Weight: 68 kg

DRUGS (14)
  1. ERLEADA [Suspect]
     Active Substance: APALUTAMIDE
     Indication: Hormone-dependent prostate cancer
     Route: 048
     Dates: start: 20220505
  2. GALLIUM GA-68 GOZETOTIDE [Suspect]
     Active Substance: GALLIUM GA-68 GOZETOTIDE
     Indication: Hormone-dependent prostate cancer
     Dates: start: 20220503, end: 20220503
  3. TRIPTORELIN [Suspect]
     Active Substance: TRIPTORELIN
     Indication: Hormone-dependent prostate cancer
     Dates: start: 20220406
  4. ACEBUTOLOL [Concomitant]
     Active Substance: ACEBUTOLOL
     Indication: Cardiovascular event prophylaxis
     Route: 065
  5. ASPIRIN DL-LYSINE [Concomitant]
     Active Substance: ASPIRIN DL-LYSINE
     Indication: Cardiovascular event prophylaxis
     Route: 065
  6. CALCIUM\CHOLECALCIFEROL [Concomitant]
     Active Substance: CALCIUM\CHOLECALCIFEROL
     Indication: Prophylaxis
     Route: 065
  7. CANDESARTAN [Concomitant]
     Active Substance: CANDESARTAN
     Indication: Cardiovascular event prophylaxis
     Route: 065
  8. LERCANIDIPINE [Concomitant]
     Active Substance: LERCANIDIPINE
     Indication: Cardiovascular event prophylaxis
     Route: 065
     Dates: end: 20221020
  9. PRAVASTATIN [Concomitant]
     Active Substance: PRAVASTATIN
     Indication: Cardiovascular event prophylaxis
     Route: 065
  10. ALFUZOSIN [Concomitant]
     Active Substance: ALFUZOSIN
     Indication: Benign prostatic hyperplasia
     Route: 065
     Dates: end: 20221117
  11. DUTASTERIDE [Concomitant]
     Active Substance: DUTASTERIDE
     Indication: Benign prostatic hyperplasia
     Route: 065
     Dates: start: 20220309
  12. HERBALS\SAW PALMETTO [Concomitant]
     Active Substance: HERBALS\SAW PALMETTO
     Indication: Pollakiuria
     Route: 065
     Dates: start: 20220309
  13. EZETIMIBE [Concomitant]
     Active Substance: EZETIMIBE
     Indication: Hyperlipidaemia
     Route: 065
     Dates: start: 20220318
  14. PIRACETAM [Concomitant]
     Active Substance: PIRACETAM
     Indication: Tinnitus
     Route: 065
     Dates: start: 20220527, end: 20220823

REACTIONS (1)
  - Erectile dysfunction [Not Recovered/Not Resolved]

NARRATIVE: CASE EVENT DATE: 20220712
